FAERS Safety Report 5723234-2 (Version None)
Quarter: 2008Q2

REPORT INFORMATION
  Report Type: 
  Country: None (occurrence: None)
  Receive Date: 20080430
  Receipt Date: 20080204
  Transmission Date: 20081010
  Serious: No
  Sender: FDA-Public Use
  Company Number: US-ASTRAZENECA-2008UW02534

PATIENT
  Age: 59 Year
  Sex: Male
  Weight: 74.8 kg

DRUGS (2)
  1. NEXIUM [Suspect]
     Indication: GASTROOESOPHAGEAL REFLUX DISEASE
     Route: 048
     Dates: start: 20070101, end: 20070101
  2. NEXIUM [Suspect]
     Route: 048
     Dates: start: 20080101, end: 20080101

REACTIONS (3)
  - DRY MOUTH [None]
  - DYSGEUSIA [None]
  - GLOSSODYNIA [None]
